FAERS Safety Report 18511374 (Version 6)
Quarter: 2022Q3

REPORT INFORMATION
  Report Type: Report from Study
  Country: PA (occurrence: PA)
  Receive Date: 20201117
  Receipt Date: 20220801
  Transmission Date: 20221027
  Serious: Yes (Other)
  Sender: FDA-Public Use
  Company Number: NVSC2020PA303013

PATIENT
  Sex: Female
  Weight: 61.224 kg

DRUGS (3)
  1. GILENYA [Suspect]
     Active Substance: FINGOLIMOD HYDROCHLORIDE
     Indication: Multiple sclerosis
     Dosage: 1 DF, QD, IN THE MORNING
     Route: 065
     Dates: start: 2019
  2. GILENYA [Suspect]
     Active Substance: FINGOLIMOD HYDROCHLORIDE
     Dosage: 0.5 MG, QD (VIA MOUTH)
     Route: 048
     Dates: start: 20200116
  3. PERINDOPRIL [Concomitant]
     Active Substance: PERINDOPRIL
     Indication: Product used for unknown indication
     Dosage: 1 DF, QD, IN THE MORNING
     Route: 065
     Dates: start: 2019

REACTIONS (5)
  - Decreased immune responsiveness [Recovered/Resolved]
  - COVID-19 [Recovered/Resolved]
  - Lymphopenia [Recovered/Resolved]
  - Eye pain [Not Recovered/Not Resolved]
  - Muscle spasms [Unknown]
